FAERS Safety Report 11438566 (Version 1)
Quarter: 2015Q3

REPORT INFORMATION
  Report Type: Spontaneous
  Country: US (occurrence: US)
  Receive Date: 20150901
  Receipt Date: 20150901
  Transmission Date: 20151125
  Serious: No
  Sender: FDA-Public Use
  Company Number: US-ROCHE-1062731

PATIENT
  Sex: Male
  Weight: 96.25 kg

DRUGS (3)
  1. RIBAVIRIN. [Suspect]
     Active Substance: RIBAVIRIN
     Indication: CHRONIC HEPATITIS C
     Dosage: DIVIDED DOSES
     Route: 048
     Dates: start: 20120403
  2. TELAPREVIR [Suspect]
     Active Substance: TELAPREVIR
     Indication: CHRONIC HEPATITIS C
     Route: 065
     Dates: start: 20120403, end: 20120626
  3. PEGASYS [Suspect]
     Active Substance: PEGINTERFERON ALFA-2A
     Indication: CHRONIC HEPATITIS C
     Route: 058
     Dates: start: 20120403

REACTIONS (22)
  - Headache [Unknown]
  - Arthralgia [Unknown]
  - Insomnia [Unknown]
  - Cerebral disorder [Unknown]
  - Psoriasis [Unknown]
  - Rash erythematous [Unknown]
  - Somnolence [Unknown]
  - Throat irritation [Unknown]
  - Visual impairment [Unknown]
  - Memory impairment [Unknown]
  - Fatigue [Unknown]
  - Malaise [Unknown]
  - Nausea [Unknown]
  - Dizziness [Unknown]
  - Decreased appetite [Unknown]
  - Irritability [Unknown]
  - Aphonia [Unknown]
  - Eye pain [Unknown]
  - Weight increased [Unknown]
  - Pruritus [Unknown]
  - Cognitive disorder [Unknown]
  - Skin exfoliation [Unknown]
